FAERS Safety Report 24432910 (Version 2)
Quarter: 2024Q4

REPORT INFORMATION
  Report Type: Spontaneous
  Country: IT (occurrence: IT)
  Receive Date: 20241014
  Receipt Date: 20241024
  Transmission Date: 20250114
  Serious: Yes (Hospitalization, Other)
  Sender: GUERBET
  Company Number: IT-GUERBET / GUERBET SpA-IT-20240084

PATIENT
  Age: 55 Year
  Sex: Male

DRUGS (2)
  1. LIPIODOL [Suspect]
     Active Substance: ETHIODIZED OIL
     Indication: Transcatheter arterial chemoembolisation
     Dosage: ABOUT 40 MG OF DOXORUBICIN EMULSIFIED TO 8 ML OF LIPIODOL
     Route: 013
     Dates: start: 20240906, end: 20240906
  2. DOXORUBICIN [Suspect]
     Active Substance: DOXORUBICIN
     Indication: Transcatheter arterial chemoembolisation
     Dosage: ABOUT 40 MG OF DOXORUBICIN WHICH WAS EMULSIFIED TO 8 ML OF LIPIODOL
     Route: 013
     Dates: start: 20240906, end: 20240906

REACTIONS (5)
  - Aspartate aminotransferase increased [Recovering/Resolving]
  - Alanine aminotransferase increased [Recovering/Resolving]
  - Gamma-glutamyltransferase increased [Recovering/Resolving]
  - Portal vein thrombosis [Recovered/Resolved]
  - Pain [Recovered/Resolved]
